FAERS Safety Report 5373432-5 (Version None)
Quarter: 2007Q2

REPORT INFORMATION
  Report Type: 
  Country: None (occurrence: None)
  Receive Date: 20070626
  Receipt Date: 20070626
  Transmission Date: 20071010
  Serious: No
  Sender: FDA-Public Use
  Company Number: None

PATIENT
  Sex: Female
  Weight: 64.4108 kg

DRUGS (1)
  1. EFFEXOR XR [Suspect]
     Indication: DEPRESSION
     Dosage: 75 MG 3 PER DAY PO
     Route: 048
     Dates: start: 20000115, end: 20070502

REACTIONS (8)
  - CONFUSIONAL STATE [None]
  - DISTURBANCE IN ATTENTION [None]
  - DYSPEPSIA [None]
  - HEADACHE [None]
  - IRRITABILITY [None]
  - NAUSEA [None]
  - PAIN [None]
  - WEIGHT INCREASED [None]
